FAERS Safety Report 9240060 (Version 1)
Quarter: 2013Q2

REPORT INFORMATION
  Report Type: Spontaneous
  Country: US (occurrence: US)
  Receive Date: 20130418
  Receipt Date: 20130418
  Transmission Date: 20140414
  Serious: No
  Sender: FDA-Public Use
  Company Number: US-SANOFI-AVENTIS-2012SA037209

PATIENT
  Age: 57 Year
  Sex: Male

DRUGS (2)
  1. ENOXAPARIN SODIUM - WINTHROP [Suspect]
     Indication: DEEP VEIN THROMBOSIS
     Route: 065
     Dates: start: 20120515
  2. COUMADIN [Concomitant]

REACTIONS (3)
  - Energy increased [Unknown]
  - Change in sustained attention [Unknown]
  - International normalised ratio decreased [Unknown]
